FAERS Safety Report 9426729 (Version 1)
Quarter: 2013Q3

REPORT INFORMATION
  Report Type: Spontaneous
  Country: US (occurrence: US)
  Receive Date: 20130730
  Receipt Date: 20130730
  Transmission Date: 20140515
  Serious: Yes (Other)
  Sender: FDA-Public Use
  Company Number: US-SANOFI-AVENTIS-2012SA054091

PATIENT
  Age: 37 Year
  Sex: Female

DRUGS (2)
  1. AMBIEN CR [Suspect]
     Route: 065
  2. BUPROPION [Concomitant]

REACTIONS (3)
  - Suicidal ideation [Recovered/Resolved]
  - Indifference [Recovered/Resolved]
  - Memory impairment [Recovered/Resolved]
